FAERS Safety Report 24057915 (Version 2)
Quarter: 2024Q3

REPORT INFORMATION
  Report Type: Spontaneous
  Country: US (occurrence: US)
  Receive Date: 20240707
  Receipt Date: 20240718
  Transmission Date: 20241017
  Serious: Yes (Hospitalization, Other)
  Sender: AMGEN
  Company Number: US-AMGEN-USASP2024129807

PATIENT
  Sex: Female

DRUGS (6)
  1. IMDELLTRA [Suspect]
     Active Substance: TARLATAMAB-DLLE
     Indication: Small cell lung cancer
     Dosage: 1 MILLIGRAM (CYCLE 1, DAY 1)
     Route: 042
     Dates: start: 20240627, end: 20240627
  2. IMDELLTRA [Suspect]
     Active Substance: TARLATAMAB-DLLE
     Dosage: 1 MILLIGRAM (CYCLE 1, DAY 8), DOSE DECREASED
     Route: 042
     Dates: start: 20240705
  3. TYLENOL [Concomitant]
     Active Substance: ACETAMINOPHEN
     Dosage: UNK
     Route: 065
  4. TYLENOL [Concomitant]
     Active Substance: ACETAMINOPHEN
     Indication: Bone pain
     Route: 042
  5. TYLENOL [Concomitant]
     Active Substance: ACETAMINOPHEN
     Indication: Product used for unknown indication
     Route: 042
  6. OXYCONTIN [Concomitant]
     Active Substance: OXYCODONE HYDROCHLORIDE

REACTIONS (8)
  - Depressed level of consciousness [Recovering/Resolving]
  - Lethargy [Unknown]
  - Confusional state [Unknown]
  - Cytokine release syndrome [Recovering/Resolving]
  - Fatigue [Unknown]
  - Pyrexia [Unknown]
  - Lethargy [Recovering/Resolving]
  - Blood lactic acid increased [Recovering/Resolving]

NARRATIVE: CASE EVENT DATE: 20240627
